FAERS Safety Report 10430203 (Version 3)
Quarter: 2015Q2

REPORT INFORMATION
  Report Type: Spontaneous
  Country: US (occurrence: US)
  Receive Date: 20140904
  Receipt Date: 20150406
  Transmission Date: 20150821
  Serious: No
  Sender: FDA-Public Use
  Company Number: US-ELI_LILLY_AND_COMPANY-US201406003828

PATIENT
  Age: 72 Year
  Sex: Female

DRUGS (9)
  1. HUMULIN N [Suspect]
     Active Substance: INSULIN HUMAN
     Dosage: 20 U, EACH EVENING
     Route: 065
     Dates: start: 201405
  2. VITAMIN D [Concomitant]
     Active Substance: CHOLECALCIFEROL
  3. HUMULIN N [Suspect]
     Active Substance: INSULIN HUMAN
     Indication: TYPE 2 DIABETES MELLITUS
     Dosage: 30 U, EACH MORNING
     Route: 065
     Dates: start: 201405
  4. HUMULIN N [Concomitant]
     Active Substance: INSULIN HUMAN
     Indication: TYPE 2 DIABETES MELLITUS
     Route: 065
  5. TAGAMET [Concomitant]
     Active Substance: CIMETIDINE
  6. HUMULIN N [Suspect]
     Active Substance: INSULIN HUMAN
     Dosage: 10 U, EACH EVENING
     Route: 065
     Dates: start: 201405
  7. HUMULIN N [Suspect]
     Active Substance: INSULIN HUMAN
     Dosage: 25 U, EACH MORNING
     Route: 065
  8. CHILDRENS TYLENOL [Concomitant]
     Active Substance: ACETAMINOPHEN
  9. PROTONIX [Concomitant]
     Active Substance: PANTOPRAZOLE SODIUM
     Indication: DYSPHAGIA
     Dosage: 40 MG, UNK

REACTIONS (10)
  - Hypoacusis [Unknown]
  - Mobility decreased [Unknown]
  - Incorrect dose administered [Unknown]
  - Underdose [Unknown]
  - Musculoskeletal pain [Unknown]
  - Blood glucose increased [Unknown]
  - Arthralgia [Unknown]
  - Groin pain [Unknown]
  - Hypoaesthesia [Unknown]
  - Back pain [Unknown]

NARRATIVE: CASE EVENT DATE: 20140615
